FAERS Safety Report 18743070 (Version 1)
Quarter: 2021Q1

REPORT INFORMATION
  Report Type: Spontaneous
  Country: US (occurrence: US)
  Receive Date: 20210114
  Receipt Date: 20210114
  Transmission Date: 20210419
  Serious: Yes (Other)
  Sender: FDA-Public Use
  Company Number: US-NOVOPROD-754701

PATIENT
  Sex: Female

DRUGS (1)
  1. OZEMPIC [Suspect]
     Active Substance: SEMAGLUTIDE
     Indication: TYPE 2 DIABETES MELLITUS
     Dosage: 1 MG
     Route: 058
     Dates: start: 201909

REACTIONS (7)
  - Visual impairment [Unknown]
  - Dry eye [Unknown]
  - Weight decreased [Unknown]
  - Dry mouth [Unknown]
  - Diabetic retinopathy [Recovering/Resolving]
  - Ocular discomfort [Unknown]
  - Eye discharge [Unknown]
